FAERS Safety Report 9090663 (Version 1)
Quarter: 2013Q1

REPORT INFORMATION
  Report Type: Spontaneous
  Country: GB (occurrence: GB)
  Receive Date: 20130201
  Receipt Date: 20130201
  Transmission Date: 20140127
  Serious: Yes (Other)
  Sender: FDA-Public Use
  Company Number: GB-ASTRAZENECA-2013SE07250

PATIENT
  Age: 59 Year
  Sex: Female

DRUGS (2)
  1. VANDETANIB [Suspect]
     Route: 048
     Dates: start: 20120917
  2. DOXORUBICIN [Concomitant]
     Indication: THYROID CANCER METASTATIC

REACTIONS (3)
  - Dysphagia [Unknown]
  - Ejection fraction decreased [Unknown]
  - Proteinuria [Unknown]
